FAERS Safety Report 16491235 (Version 1)
Quarter: 2019Q3

REPORT INFORMATION
  Report Type: Spontaneous
  Country: US (occurrence: US)
  Receive Date: 20190627
  Receipt Date: 20190627
  Transmission Date: 20191004
  Serious: Yes (Other)
  Sender: FDA-Public Use
  Company Number: None

PATIENT
  Age: 85 Year
  Sex: Female
  Weight: 86.9 kg

DRUGS (19)
  1. HYDROXYUREA. [Suspect]
     Active Substance: HYDROXYUREA
     Indication: CHRONIC MYELOMONOCYTIC LEUKAEMIA
     Route: 048
     Dates: start: 20190607
  2. FOLIC ACID. [Concomitant]
     Active Substance: FOLIC ACID
  3. PROBIOTIC [Concomitant]
     Active Substance: PROBIOTICS NOS
  4. ROSUVASTATIN. [Concomitant]
     Active Substance: ROSUVASTATIN
  5. METOPROLOL. [Concomitant]
     Active Substance: METOPROLOL
  6. CALTRATE [Concomitant]
     Active Substance: CALCIUM CARBONATE
  7. PERCOCET [Concomitant]
     Active Substance: ACETAMINOPHEN\OXYCODONE HYDROCHLORIDE
  8. VENLAFAXINE [Concomitant]
     Active Substance: VENLAFAXINE HYDROCHLORIDE
  9. ONDANSETRON [Concomitant]
     Active Substance: ONDANSETRON
  10. MVI ADULT [Concomitant]
  11. FLAXSEED [Concomitant]
     Active Substance: FLAX SEED
  12. PRADAXA [Concomitant]
     Active Substance: DABIGATRAN ETEXILATE MESYLATE
  13. POTASSIUM CHLOIDE ER [Concomitant]
  14. FLUOROURACIL. [Concomitant]
     Active Substance: FLUOROURACIL
  15. ASPIRIN. [Concomitant]
     Active Substance: ASPIRIN
  16. CLONAZEPAM. [Concomitant]
     Active Substance: CLONAZEPAM
  17. LASIX [Concomitant]
     Active Substance: FUROSEMIDE
  18. AMIODARONE [Concomitant]
     Active Substance: AMIODARONE
  19. TELMISARTAN. [Concomitant]
     Active Substance: TELMISARTAN

REACTIONS (2)
  - Inflammation [None]
  - Musculoskeletal chest pain [None]
